FAERS Safety Report 8254589-5 (Version None)
Quarter: 2012Q2

REPORT INFORMATION
  Report Type: 
  Country: None (occurrence: None)
  Receive Date: 20120403
  Receipt Date: 20120329
  Transmission Date: 20120825
  Serious: Yes (Other)
  Sender: FDA-Public Use
  Company Number: US-AMGEN-USASP2012020238

PATIENT
  Age: 70 Year
  Sex: Male

DRUGS (1)
  1. NPLATE [Suspect]
     Indication: IDIOPATHIC THROMBOCYTOPENIC PURPURA
     Dosage: 0.01 UNK, QWK
     Route: 058
     Dates: start: 20081008

REACTIONS (2)
  - ATRIAL FIBRILLATION [None]
  - PLATELET COUNT INCREASED [None]
